FAERS Safety Report 7452966-3 (Version None)
Quarter: 2011Q2

REPORT INFORMATION
  Report Type: 
  Country: None (occurrence: None)
  Receive Date: 20110502
  Receipt Date: 20110425
  Transmission Date: 20111010
  Serious: Yes (Hospitalization)
  Sender: FDA-Public Use
  Company Number: JP-AMGEN-JPNCT2011011382

PATIENT
  Age: 73 Year
  Sex: Male
  Weight: 54 kg

DRUGS (15)
  1. PANITUMUMAB [Suspect]
     Indication: COLORECTAL CANCER
     Dosage: UNK, Q2WK
     Route: 041
     Dates: start: 20101020
  2. OXALIPLATIN [Suspect]
     Indication: COLORECTAL CANCER
     Route: 041
     Dates: start: 20101020
  3. PENTACILLIN [Concomitant]
     Route: 042
  4. HARNAL D [Concomitant]
     Indication: BENIGN PROSTATIC HYPERPLASIA
     Route: 048
  5. MAGLAX [Concomitant]
     Indication: CONSTIPATION
     Route: 048
  6. LEBENIN S [Concomitant]
     Indication: CONSTIPATION
     Route: 048
  7. BERIZYM [Concomitant]
     Indication: CONSTIPATION
     Route: 048
  8. CALCIUM LEVOFOLINATE [Suspect]
     Indication: COLORECTAL CANCER
     Route: 041
     Dates: start: 20101020
  9. SECURA ML [Concomitant]
     Indication: PROPHYLAXIS
     Route: 062
  10. CORTICOSTEROIDS [Concomitant]
     Indication: PROPHYLAXIS
     Route: 065
  11. DEPAS [Concomitant]
     Indication: INSOMNIA
     Route: 048
  12. FLUOROURACIL [Suspect]
     Indication: COLORECTAL CANCER
     Route: 041
     Dates: start: 20101020
  13. KINDAVATE [Concomitant]
     Indication: PROPHYLAXIS
     Route: 062
  14. GENINAX [Concomitant]
     Route: 048
  15. ANTIHISTAMINES [Concomitant]
     Indication: PROPHYLAXIS
     Route: 065

REACTIONS (3)
  - DERMATITIS ACNEIFORM [None]
  - BRONCHOPNEUMONIA [None]
  - THROMBOCYTOPENIA [None]
